FAERS Safety Report 16818963 (Version 1)
Quarter: 2019Q3

REPORT INFORMATION
  Report Type: Report from Study
  Country: BR (occurrence: BR)
  Receive Date: 20190917
  Receipt Date: 20190917
  Transmission Date: 20191005
  Serious: Yes (Other)
  Sender: FDA-Public Use
  Company Number: BR-UCBSA-2019038972

PATIENT
  Age: 62 Year
  Sex: Female
  Weight: 78 kg

DRUGS (4)
  1. CERTOLIZUMAB PEGOL [Suspect]
     Active Substance: CERTOLIZUMAB PEGOL
     Indication: RHEUMATOID ARTHRITIS
     Dosage: 400 MILLIGRAM, EV 4 WEEKS
     Route: 058
     Dates: start: 201808
  2. PREDNISONA [Concomitant]
     Active Substance: PREDNISONE
     Indication: SCIATIC NERVE INJURY
  3. PREDNISONA [Concomitant]
     Active Substance: PREDNISONE
     Indication: RHEUMATOID ARTHRITIS
     Dosage: 60 MILLIGRAM, 2X/DAY (BID)
     Route: 048
     Dates: start: 20190825
  4. ARAVA [Concomitant]
     Active Substance: LEFLUNOMIDE
     Indication: RHEUMATOID ARTHRITIS
     Dosage: 1 DOSAGE FORM, ONCE DAILY (QD)
     Route: 048

REACTIONS (2)
  - Sciatic nerve injury [Recovering/Resolving]
  - Mood altered [Recovering/Resolving]

NARRATIVE: CASE EVENT DATE: 20190824
